FAERS Safety Report 26020086 (Version 1)
Quarter: 2025Q4

REPORT INFORMATION
  Report Type: Spontaneous
  Country: US (occurrence: None)
  Receive Date: 20251108
  Receipt Date: 20251108
  Transmission Date: 20260117
  Serious: Yes (Other)
  Sender: FDA-CTU
  Company Number: None

PATIENT
  Age: 33 Year
  Sex: Male

DRUGS (4)
  1. MONTELUKAST SODIUM [Suspect]
     Active Substance: MONTELUKAST SODIUM
     Dates: start: 20250721, end: 20250817
  2. ZYRTEC [Concomitant]
     Active Substance: CETIRIZINE HYDROCHLORIDE
  3. CLARITIN [Concomitant]
     Active Substance: LORATADINE
  4. PEPCID [Concomitant]
     Active Substance: FAMOTIDINE

REACTIONS (14)
  - Palpitations [None]
  - Heart rate increased [None]
  - Nightmare [None]
  - Visual impairment [None]
  - Hypoaesthesia [None]
  - Limb discomfort [None]
  - Peripheral coldness [None]
  - Gastrointestinal disorder [None]
  - Abnormal faeces [None]
  - Diarrhoea [None]
  - Productive cough [None]
  - Throat irritation [None]
  - Pharyngeal paraesthesia [None]
  - Headache [None]

NARRATIVE: CASE EVENT DATE: 20250721
